FAERS Safety Report 6343169-4 (Version None)
Quarter: 2009Q3

REPORT INFORMATION
  Report Type: 
  Country: None (occurrence: None)
  Receive Date: 20090908
  Receipt Date: 20090901
  Transmission Date: 20100115
  Serious: Yes (Other)
  Sender: FDA-Public Use
  Company Number: US-ASTRAZENECA-2009UW19314

PATIENT
  Age: 72 Year
  Sex: Female

DRUGS (4)
  1. ARIMIDEX [Suspect]
     Indication: BREAST CANCER
     Route: 048
     Dates: start: 20060101, end: 20090101
  2. BONIVA [Concomitant]
  3. ASPIRIN [Concomitant]
  4. ALENDRONATE SODIUM [Concomitant]

REACTIONS (1)
  - ANGIODYSPLASIA [None]
